FAERS Safety Report 6547859-X (Version None)
Quarter: 2010Q1

REPORT INFORMATION
  Report Type: 
  Country: None (occurrence: None)
  Receive Date: 20100124
  Receipt Date: 20091106
  Transmission Date: 20100710
  Serious: No
  Sender: FDA-Public Use
  Company Number: US-ALEXION-A200900927

PATIENT
  Sex: Female

DRUGS (3)
  1. SOLIRIS [Suspect]
     Dosage: UNK, TRIAL
     Route: 042
     Dates: start: 20060101
  2. SOLIRIS [Suspect]
     Dosage: 900 MG, Q 3 WEEKS
     Route: 042
  3. DEFERIPRONE [Concomitant]
     Dosage: UNK

REACTIONS (4)
  - DIZZINESS [None]
  - FATIGUE [None]
  - IMPAIRED DRIVING ABILITY [None]
  - NAUSEA [None]
